FAERS Safety Report 24076460 (Version 2)
Quarter: 2024Q4

REPORT INFORMATION
  Report Type: Spontaneous
  Country: JP (occurrence: JP)
  Receive Date: 20240711
  Receipt Date: 20241031
  Transmission Date: 20250115
  Serious: Yes (Hospitalization, Other)
  Sender: BRISTOL-MYERS SQUIBB COMPANY
  Company Number: JP-BRISTOL-MYERS SQUIBB COMPANY-2024-107960

PATIENT
  Age: 85 Year
  Sex: Female

DRUGS (2)
  1. YERVOY [Suspect]
     Active Substance: IPILIMUMAB
     Indication: Lung adenocarcinoma
     Dosage: DOSE : UNAVAILABLE;     FREQ : UNAVAILABLE
     Route: 041
  2. OPDIVO [Suspect]
     Active Substance: NIVOLUMAB
     Indication: Lung adenocarcinoma

REACTIONS (9)
  - Immune-mediated dermatitis [Recovered/Resolved]
  - Depressed level of consciousness [Unknown]
  - Platelet count decreased [Unknown]
  - Cytokine release syndrome [Unknown]
  - Decreased appetite [Unknown]
  - Nasopharyngitis [Unknown]
  - Oral mucosa erosion [Unknown]
  - Malnutrition [Unknown]
  - Pyrexia [Recovered/Resolved]
